FAERS Safety Report 6083916-2 (Version None)
Quarter: 2009Q1

REPORT INFORMATION
  Report Type: 
  Country: None (occurrence: None)
  Receive Date: 20090204
  Receipt Date: 20071005
  Transmission Date: 20090719
  Serious: No
  Sender: FDA-Public Use
  Company Number: 268179

PATIENT
  Age: 36 Year
  Sex: Male

DRUGS (1)
  1. NOVOLOG [Suspect]
     Indication: INSULIN-REQUIRING TYPE 2 DIABETES MELLITUS
     Dosage: 4 IU, QD, SUBCUTANEOUS
     Route: 058

REACTIONS (4)
  - CONSTIPATION [None]
  - INFLUENZA LIKE ILLNESS [None]
  - MIGRAINE [None]
  - PAIN [None]
